FAERS Safety Report 23518810 (Version 1)
Quarter: 2024Q1

REPORT INFORMATION
  Report Type: Spontaneous
  Country: US (occurrence: US)
  Receive Date: 20240213
  Receipt Date: 20240213
  Transmission Date: 20240409
  Serious: Yes (Other)
  Sender: FDA-Public Use
  Company Number: US-FreseniusKabi-FK202402283

PATIENT
  Age: 61 Year
  Sex: Male

DRUGS (14)
  1. FLUDARABINE [Suspect]
     Active Substance: FLUDARABINE PHOSPHATE
     Indication: Lymphodepletion
     Dosage: (PLANNED REDUCTION FROM 30 MG/M2 PER PROTOCOL DUE TO RENAL FUNCTION)
     Dates: start: 202103
  2. CYCLOPHOSPHAMIDE [Suspect]
     Active Substance: CYCLOPHOSPHAMIDE
     Indication: Lymphodepletion
     Dates: start: 202103
  3. INVESTIGATIONAL PRODUCT [Suspect]
     Active Substance: INVESTIGATIONAL PRODUCT
     Indication: Apheresis
     Dates: start: 202103
  4. GENETICALLY-MODIFIED AUTOLOGOUS T CELLS NOS [Suspect]
     Active Substance: GENETICALLY-MODIFIED AUTOLOGOUS T CELLS NOS
     Indication: Synovial sarcoma
     Dosage: DOSE: 4,893.4 ? 10 TO THE POWER OF 6 TRANSDUCED CELLS OCCURRED IN MAY 2021
     Dates: start: 202105
  5. ACYCLOVIR [Concomitant]
     Active Substance: ACYCLOVIR
     Indication: Product used for unknown indication
     Dosage: AT A DOSE OF 800 MG TWICE DAILY
     Dates: start: 2021
  6. TRABECTEDIN [Concomitant]
     Active Substance: TRABECTEDIN
     Indication: Disease progression
     Dosage: 2 CYCLES OF TRABECTEDIN
     Dates: start: 202112, end: 202202
  7. TRABECTEDIN [Concomitant]
     Active Substance: TRABECTEDIN
     Indication: Synovial sarcoma
  8. TOCILIZUMAB [Concomitant]
     Active Substance: TOCILIZUMAB
     Indication: Cytokine release syndrome
  9. TOCILIZUMAB [Concomitant]
     Active Substance: TOCILIZUMAB
     Indication: Neurotoxicity
  10. DEXAMETHASONE [Concomitant]
     Active Substance: DEXAMETHASONE
     Indication: Cytokine release syndrome
  11. DEXAMETHASONE [Concomitant]
     Active Substance: DEXAMETHASONE
     Indication: Neurotoxicity
  12. OXYGEN [Concomitant]
     Active Substance: OXYGEN
     Indication: Hypoxia
  13. IV Saline bolus [Concomitant]
     Indication: Hypotension
  14. granulocyte colony-stimulating factor support [Concomitant]
     Indication: Neutropenia

REACTIONS (1)
  - Epstein-Barr virus associated lymphoproliferative disorder [Recovered/Resolved]
